FAERS Safety Report 9796008 (Version 2)
Quarter: 2015Q3

REPORT INFORMATION
  Report Type: Spontaneous
  Country: US (occurrence: US)
  Receive Date: 20140103
  Receipt Date: 20150721
  Transmission Date: 20151125
  Serious: No
  Sender: FDA-Public Use
  Company Number: US-GILEAD-2010-0032400

PATIENT
  Age: 83 Year
  Sex: Male

DRUGS (3)
  1. CIPROFLOXACIN. [Concomitant]
     Active Substance: CIPROFLOXACIN
  2. CAYSTON [Suspect]
     Active Substance: AZTREONAM
     Indication: BRONCHIECTASIS
  3. AZTREONAM. [Concomitant]
     Active Substance: AZTREONAM

REACTIONS (3)
  - Choking [Unknown]
  - Chest discomfort [Unknown]
  - Throat tightness [Unknown]
